FAERS Safety Report 7307743-0 (Version None)
Quarter: 2011Q1

REPORT INFORMATION
  Report Type: 
  Country: None (occurrence: None)
  Receive Date: 20110223
  Receipt Date: 20110210
  Transmission Date: 20110831
  Serious: Yes (Other)
  Sender: FDA-Public Use
  Company Number: US-ELI_LILLY_AND_COMPANY-US201101006348

PATIENT
  Age: 62 Year
  Sex: Female

DRUGS (6)
  1. CYMBALTA [Suspect]
     Dosage: 60 MG, EACH EVENING
     Dates: start: 20110118
  2. CYMBALTA [Suspect]
     Dosage: 60 MG, EACH MORNING
  3. CYMBALTA [Suspect]
     Dosage: 30 MG, EACH EVENING
  4. CYMBALTA [Suspect]
     Dosage: 30 MG, EACH EVENING
  5. CYMBALTA [Suspect]
     Dosage: 120 MG, EACH MORNING
     Dates: start: 20110118
  6. CYMBALTA [Suspect]
     Dosage: 60 MG, EACH MORNING

REACTIONS (6)
  - DRUG DISPENSING ERROR [None]
  - BREAST CANCER METASTATIC [None]
  - CRYING [None]
  - FEELING ABNORMAL [None]
  - INCORRECT DOSE ADMINISTERED [None]
  - ACCIDENTAL OVERDOSE [None]
